FAERS Safety Report 19670362 (Version 1)
Quarter: 2021Q3

REPORT INFORMATION
  Report Type: Spontaneous
  Country: US (occurrence: US)
  Receive Date: 20210806
  Receipt Date: 20210806
  Transmission Date: 20211014
  Serious: Yes (Hospitalization, Other)
  Sender: FDA-Public Use
  Company Number: US-SAOL THERAPEUTICS-2019SAO00003

PATIENT
  Age: 30 Year
  Sex: Female

DRUGS (1)
  1. LIORESAL [Suspect]
     Active Substance: BACLOFEN
     Indication: MUSCLE SPASTICITY
     Dosage: 130.14 ?G, \DAY
     Route: 037

REACTIONS (8)
  - Vomiting [Unknown]
  - Device failure [Recovered/Resolved]
  - Pain [Unknown]
  - Implant site erosion [Recovered/Resolved]
  - Drug withdrawal syndrome [Unknown]
  - Seizure [Unknown]
  - Anxiety [Unknown]
  - Therapeutic product effect variable [Unknown]

NARRATIVE: CASE EVENT DATE: 2018
